FAERS Safety Report 25518878 (Version 1)
Quarter: 2025Q3

REPORT INFORMATION
  Report Type: Spontaneous
  Country: EU (occurrence: EU)
  Receive Date: 20250704
  Receipt Date: 20250704
  Transmission Date: 20251021
  Serious: Yes (Other)
  Sender: SANDOZ
  Company Number: EU-AUROBINDO-AUR-APL-2021-001823

PATIENT
  Age: 6 Year
  Sex: Male

DRUGS (3)
  1. THYMOCYTE IMMUNE GLOBULIN NOS [Suspect]
     Active Substance: THYMOCYTE IMMUNE GLOBULIN NOS
     Indication: Immunosuppression
     Route: 065
  2. CYCLOPHOSPHAMIDE [Suspect]
     Active Substance: CYCLOPHOSPHAMIDE
     Indication: Immunosuppression
     Route: 065
  3. FLUDARABINE [Suspect]
     Active Substance: FLUDARABINE PHOSPHATE
     Indication: Immunosuppression
     Route: 065

REACTIONS (4)
  - Metapneumovirus infection [Unknown]
  - Pulmonary hypertension [Unknown]
  - Pericardial effusion [Unknown]
  - BK virus infection [Recovered/Resolved]
